FAERS Safety Report 17243755 (Version 1)
Quarter: 2020Q1

REPORT INFORMATION
  Report Type: Spontaneous
  Country: FR (occurrence: FR)
  Receive Date: 20200107
  Receipt Date: 20200107
  Transmission Date: 20200409
  Serious: Yes (Other)
  Sender: FDA-Public Use
  Company Number: FR-MYLANLABS-2020M1001110

PATIENT
  Age: 83 Year
  Sex: Male

DRUGS (8)
  1. REOPRO [Suspect]
     Active Substance: ABCIXIMAB
     Indication: ANGIOCARDIOGRAM
     Dosage: UNK
     Route: 040
     Dates: start: 20170324
  2. KRENOSIN [Concomitant]
     Active Substance: ADENOSINE
     Indication: PRODUCT USED FOR UNKNOWN INDICATION
     Dosage: UNK
     Route: 065
  3. ROGART [Concomitant]
     Indication: PRODUCT USED FOR UNKNOWN INDICATION
     Dosage: UNK
     Route: 065
  4. ANGIOX [Suspect]
     Active Substance: BIVALIRUDIN
     Indication: PRODUCT USED FOR UNKNOWN INDICATION
     Dosage: UNK
     Route: 041
     Dates: start: 20170324
  5. ISOPTINE [Concomitant]
     Active Substance: VERAPAMIL HYDROCHLORIDE
     Indication: PRODUCT USED FOR UNKNOWN INDICATION
     Dosage: UNK
     Route: 065
  6. NORADRAN [Concomitant]
     Indication: PRODUCT USED FOR UNKNOWN INDICATION
     Dosage: UNK
     Route: 065
  7. SERTRALINE [Suspect]
     Active Substance: SERTRALINE HYDROCHLORIDE
     Indication: DEPRESSION
     Dosage: UNK
     Route: 048
  8. ANGIOX [Suspect]
     Active Substance: BIVALIRUDIN
     Indication: ACUTE CORONARY SYNDROME
     Dosage: UNK
     Route: 040
     Dates: start: 20170324, end: 20170324

REACTIONS (5)
  - Mallory-Weiss syndrome [Unknown]
  - Gingival bleeding [Unknown]
  - Oesophageal ulcer haemorrhage [Recovered/Resolved]
  - Anaemia [Recovered/Resolved]
  - Thrombocytopenia [Unknown]

NARRATIVE: CASE EVENT DATE: 201703
